FAERS Safety Report 10244237 (Version 2)
Quarter: 2014Q3

REPORT INFORMATION
  Report Type: Spontaneous
  Country: GB (occurrence: GB)
  Receive Date: 20140618
  Receipt Date: 20140723
  Transmission Date: 20150326
  Serious: Yes (Other)
  Sender: FDA-Public Use
  Company Number: GB-ACTAVIS-2014-12610

PATIENT
  Sex: Male

DRUGS (3)
  1. FLUOXETINE [Suspect]
     Active Substance: FLUOXETINE\FLUOXETINE HYDROCHLORIDE
     Indication: PRODUCT USED FOR UNKNOWN INDICATION
     Dosage: 1 DF BID
     Route: 048
     Dates: end: 20140501
  2. FLUOXETINE [Suspect]
     Active Substance: FLUOXETINE\FLUOXETINE HYDROCHLORIDE
     Dosage: 1 DF DAILY
     Route: 048
     Dates: start: 201303, end: 20140501
  3. MIRTAZAPINE. [Concomitant]
     Active Substance: MIRTAZAPINE
     Indication: PRODUCT USED FOR UNKNOWN INDICATION
     Dosage: 30 MG, UNKNOWN
     Route: 065
     Dates: end: 20140501

REACTIONS (25)
  - Myalgia [Recovered/Resolved]
  - Nightmare [Recovered/Resolved]
  - Anxiety [Recovered/Resolved]
  - Panic attack [Recovered/Resolved]
  - Mania [Recovered/Resolved]
  - Intentional overdose [Recovered/Resolved]
  - Tremor [Recovered/Resolved]
  - Musculoskeletal stiffness [Recovered/Resolved]
  - Epistaxis [Recovered/Resolved]
  - Agitation [Recovered/Resolved]
  - Palpitations [Recovered/Resolved]
  - Photophobia [Recovered/Resolved]
  - Suicidal ideation [Recovered/Resolved]
  - Dizziness [Recovered/Resolved]
  - Paraesthesia [Recovered/Resolved]
  - Hyperhidrosis [Recovered/Resolved]
  - Confusional state [Recovered/Resolved]
  - Irritability [Recovered/Resolved]
  - Feeling abnormal [Recovered/Resolved]
  - Drug withdrawal syndrome [Recovered/Resolved]
  - Sleep disorder [Recovered/Resolved]
  - Restlessness [Recovered/Resolved]
  - Cold sweat [Recovered/Resolved]
  - Dysuria [Recovered/Resolved]
  - Abnormal behaviour [Recovered/Resolved]
